FAERS Safety Report 4994515-5 (Version None)
Quarter: 2006Q2

REPORT INFORMATION
  Report Type: 
  Country: None (occurrence: None)
  Receive Date: 20060505
  Receipt Date: 20051207
  Transmission Date: 20061013
  Serious: Yes (Hospitalization, Disabling)
  Sender: FDA-Public Use
  Company Number: US-MERCK-0512USA01055

PATIENT
  Age: 55 Year
  Sex: Female
  Weight: 109 kg

DRUGS (2)
  1. VIOXX [Suspect]
     Indication: RHEUMATOID ARTHRITIS
     Route: 048
     Dates: start: 20000101, end: 20040904
  2. VIOXX [Suspect]
     Route: 048
     Dates: start: 20040904

REACTIONS (13)
  - ARTERIOSCLEROSIS [None]
  - ARTHRALGIA [None]
  - BRONCHITIS [None]
  - DEPRESSION [None]
  - DIABETES MELLITUS [None]
  - HYPERTENSION [None]
  - MOOD SWINGS [None]
  - REFLUX OESOPHAGITIS [None]
  - SINUSITIS [None]
  - SYNOVITIS [None]
  - TENDONITIS [None]
  - THALAMIC INFARCTION [None]
  - THROMBOCYTHAEMIA [None]
